FAERS Safety Report 8183888-0 (Version None)
Quarter: 2012Q1

REPORT INFORMATION
  Report Type: 
  Country: None (occurrence: None)
  Receive Date: 20120305
  Receipt Date: 20120228
  Transmission Date: 20120608
  Serious: Yes (Death, Hospitalization)
  Sender: FDA-Public Use
  Company Number: KR-PFIZER INC-2011155332

PATIENT
  Age: 19 Year
  Sex: Male

DRUGS (4)
  1. MEROPENEM [Suspect]
     Indication: APLASTIC ANAEMIA
     Dosage: UNK
  2. LINEZOLID [Suspect]
     Indication: APLASTIC ANAEMIA
     Dosage: UNK
  3. LINEZOLID [Suspect]
     Indication: ANAL ABSCESS
  4. MEROPENEM [Suspect]
     Indication: ANAL ABSCESS

REACTIONS (4)
  - MEGACOLON [None]
  - ESCHERICHIA SEPSIS [None]
  - DIARRHOEA [None]
  - SEPTIC SHOCK [None]
